FAERS Safety Report 4973362-4 (Version None)
Quarter: 2006Q2

REPORT INFORMATION
  Report Type: 
  Country: None (occurrence: None)
  Receive Date: 20060414
  Receipt Date: 20060410
  Transmission Date: 20061013
  Serious: Yes (Hospitalization)
  Sender: FDA-Public Use
  Company Number: ES-BOEHRINGER INGELHEIM PHARMACEUTICALS, INC.-2006-DE-01886GD

PATIENT
  Age: 82 Year
  Sex: Male

DRUGS (8)
  1. PERSANTIN [Suspect]
     Route: 048
  2. CYCLADOL [Suspect]
     Route: 048
  3. TEBETANE COMPUESTO [Suspect]
     Dosage: 300 MG ALANINE/135 MG GLYCINE/795 MG GLUTAMIC ACID/90 MG PRUNUS AFRICANA
     Route: 048
  4. ZAMENE [Suspect]
     Route: 048
  5. ANDROCUR [Suspect]
     Route: 048
  6. TARDYFERON [Suspect]
     Route: 048
  7. SERMION [Suspect]
     Route: 048
  8. RANITIDINA NORMON [Suspect]
     Route: 048

REACTIONS (1)
  - DUODENAL ULCER HAEMORRHAGE [None]
